FAERS Safety Report 19231864 (Version 2)
Quarter: 2021Q2

REPORT INFORMATION
  Report Type: Spontaneous
  Country: US (occurrence: US)
  Receive Date: 20210507
  Receipt Date: 20210621
  Transmission Date: 20210717
  Serious: Yes (Other)
  Sender: FDA-Public Use
  Company Number: US-BAUSCH-BL-2021-014773

PATIENT
  Age: 72 Year
  Sex: Female
  Weight: 70.37 kg

DRUGS (2)
  1. DORZOLAMIDE HYDROCHLORIDE EYE DROPS [Suspect]
     Active Substance: DORZOLAMIDE HYDROCHLORIDE
     Indication: GLAUCOMA
     Dosage: STARTED APPROXIMATELY 1.5 YEARS AGO, ONE DROP IN BOTH EYES TWICE DAILY,
     Route: 047
     Dates: start: 2019
  2. CBD OIL [Concomitant]
     Active Substance: CANNABIDIOL\HERBALS
     Indication: PRODUCT USED FOR UNKNOWN INDICATION

REACTIONS (1)
  - Blindness transient [Recovered/Resolved]

NARRATIVE: CASE EVENT DATE: 202102
